FAERS Safety Report 5961557-2 (Version None)
Quarter: 2008Q4

REPORT INFORMATION
  Report Type: 
  Country: None (occurrence: None)
  Receive Date: 20081121
  Receipt Date: 20081117
  Transmission Date: 20090506
  Serious: Yes (Life-Threatening)
  Sender: FDA-Public Use
  Company Number: B0541531A

PATIENT
  Age: 65 Year
  Sex: Male

DRUGS (4)
  1. SELEPARINA [Suspect]
     Dosage: 3800IU PER DAY
     Route: 058
     Dates: start: 20080925, end: 20080930
  2. CEFTAZIDIME PENTAHYDRATE [Suspect]
     Indication: PLEURISY
     Dosage: 4G PER DAY
     Route: 042
     Dates: start: 20080925, end: 20080926
  3. PERMIXON [Concomitant]
     Dosage: 160MG PER DAY
     Route: 048
  4. OMNIC [Concomitant]
     Dosage: .4MG PER DAY
     Route: 048

REACTIONS (3)
  - DYSPNOEA [None]
  - SHOCK [None]
  - URTICARIA [None]
